FAERS Safety Report 18840631 (Version 1)
Quarter: 2021Q1

REPORT INFORMATION
  Report Type: Spontaneous
  Country: US (occurrence: US)
  Receive Date: 20210204
  Receipt Date: 20210204
  Transmission Date: 20210419
  Serious: No
  Sender: FDA-Public Use
  Company Number: US-JNJFOC-20210147214

PATIENT
  Age: 61 Year
  Sex: Male
  Weight: 90.72 kg

DRUGS (1)
  1. IMODIUM [Suspect]
     Active Substance: LOPERAMIDE HYDROCHLORIDE
     Indication: DIARRHOEA
     Route: 048

REACTIONS (5)
  - Pyrexia [Not Recovered/Not Resolved]
  - Product label issue [Unknown]
  - Drug ineffective [Unknown]
  - Chills [Not Recovered/Not Resolved]
  - Nausea [Not Recovered/Not Resolved]

NARRATIVE: CASE EVENT DATE: 20210107
